FAERS Safety Report 21016825 (Version 2)
Quarter: 2022Q2

REPORT INFORMATION
  Report Type: Spontaneous
  Country: HR (occurrence: HR)
  Receive Date: 20220628
  Receipt Date: 20220630
  Transmission Date: 20220720
  Serious: Yes (Other)
  Sender: FDA-Public Use
  Company Number: HR-PFIZER INC-PV202200004832

PATIENT
  Age: 60 Year
  Sex: Female

DRUGS (4)
  1. PEMETREXED [Suspect]
     Active Substance: PEMETREXED
     Indication: Non-small cell lung cancer
     Dosage: CYCLIC, 4 CYLES
  2. PEMETREXED [Suspect]
     Active Substance: PEMETREXED
     Indication: Adenocarcinoma
     Dosage: CYCLIC, MAINTAINANCE FOR 4 CYLES
  3. CISPLATIN [Concomitant]
     Active Substance: CISPLATIN
     Indication: Non-small cell lung cancer
     Dosage: CYCLIC, 4 CYLES
  4. CISPLATIN [Concomitant]
     Active Substance: CISPLATIN
     Indication: Adenocarcinoma

REACTIONS (1)
  - Neuropathy peripheral [Recovering/Resolving]
